FAERS Safety Report 12076920 (Version 1)
Quarter: 2016Q1

REPORT INFORMATION
  Report Type: Spontaneous
  Country: MY (occurrence: MY)
  Receive Date: 20160215
  Receipt Date: 20160215
  Transmission Date: 20160526
  Serious: Yes (Hospitalization)
  Sender: FDA-Public Use
  Company Number: MY-IPCA LABORATORIES LIMITED-IPC201602-000122

PATIENT
  Age: 27 Year
  Sex: Female

DRUGS (1)
  1. WARFARIN [Suspect]
     Active Substance: WARFARIN
     Indication: HEART VALVE REPLACEMENT

REACTIONS (4)
  - Peritoneal haemorrhage [Recovered/Resolved]
  - Ovarian cyst ruptured [Unknown]
  - Hypovolaemic shock [Unknown]
  - Coagulopathy [Recovered/Resolved]
